FAERS Safety Report 7220398-9 (Version None)
Quarter: 2011Q1

REPORT INFORMATION
  Report Type: 
  Country: None (occurrence: None)
  Receive Date: 20110111
  Receipt Date: 20110104
  Transmission Date: 20110831
  Serious: Yes (Other)
  Sender: FDA-Public Use
  Company Number: US-CEPHALON-2011000073

PATIENT
  Sex: Female
  Weight: 150 kg

DRUGS (23)
  1. TOPAMAX [Concomitant]
     Dates: start: 20020101
  2. UROCIT [Concomitant]
     Dates: start: 20070901
  3. BUMEX [Concomitant]
     Dates: start: 20040101
  4. HYDROCODONE BITARTRATE + ACETAMINOPHEN [Concomitant]
     Dates: start: 20071001
  5. AMARYL [Concomitant]
     Dates: start: 20070801
  6. ACIDOPHILUS [Concomitant]
  7. ASPIRIN [Concomitant]
  8. TRIPLIX [Concomitant]
  9. WELLBUTRIN XL [Concomitant]
  10. KEPPRA [Concomitant]
     Dates: start: 20020101
  11. TRAMADOL [Concomitant]
     Dates: start: 20081101
  12. KLOR-CON [Concomitant]
     Dates: start: 20030101
  13. CALTRATE PLUS [Concomitant]
  14. GEODON [Concomitant]
  15. UNITHROID [Concomitant]
     Dates: start: 20020101
  16. MULTI-VITAMIN [Concomitant]
  17. META-NX [Concomitant]
     Dates: start: 20100401
  18. ACTONEL [Concomitant]
     Dates: start: 20060101
  19. NORVASC [Concomitant]
     Dates: start: 20020101
  20. HYOSCYAMINE [Concomitant]
     Dates: start: 20080601
  21. NUVIGIL [Suspect]
     Indication: REVERSAL OF SEDATION
     Route: 048
     Dates: start: 20101222, end: 20110104
  22. CLOMIPRAMINE HCL [Concomitant]
  23. LOVAZA [Concomitant]

REACTIONS (1)
  - PHARYNGEAL OEDEMA [None]
